FAERS Safety Report 9628628 (Version 2)
Quarter: 2013Q4

REPORT INFORMATION
  Report Type: Spontaneous
  Country: FR (occurrence: FR)
  Receive Date: 20131017
  Receipt Date: 20131218
  Transmission Date: 20140711
  Serious: Yes (Death)
  Sender: FDA-Public Use
  Company Number: FR-MPIJNJ-2013JNJ000570

PATIENT
  Sex: 0

DRUGS (12)
  1. VELCADE [Suspect]
     Indication: PLASMA CELL MYELOMA
     Dosage: 1.3 MG/M2, UNK
     Route: 058
     Dates: start: 20130809, end: 20130817
  2. ACICLOVIR [Concomitant]
  3. ALDACTAZINE [Concomitant]
     Indication: HYPERTENSION
     Route: 048
  4. ALDACTONE                          /00006201/ [Concomitant]
     Indication: HYPERTENSION
     Route: 048
  5. LAMALINE                           /00764901/ [Concomitant]
     Indication: PAIN
     Dosage: UNK
     Route: 048
  6. MONOTILDIEM [Concomitant]
     Indication: HYPERTENSION
     Dosage: 300 MG, UNK
     Route: 048
  7. VALACICLOVIR [Concomitant]
     Indication: PROPHYLAXIS
     Dosage: 500 MG, BID
  8. AMOXICILLINE                       /00249602/ [Concomitant]
  9. PRAVASTATINE [Concomitant]
     Indication: DYSLIPIDAEMIA
     Dosage: 20 MG, UNK
  10. SERETIDE [Concomitant]
  11. DEXAMETHASONE [Concomitant]
     Dosage: UNK
     Dates: start: 20130809, end: 20130813
  12. EZETROL [Concomitant]
     Indication: HYPERTENSION

REACTIONS (1)
  - Death [Fatal]
